FAERS Safety Report 10205709 (Version 2)
Quarter: 2014Q2

REPORT INFORMATION
  Report Type: Spontaneous
  Country: CH (occurrence: CH)
  Receive Date: 20140530
  Receipt Date: 20140624
  Transmission Date: 20141212
  Serious: No
  Sender: FDA-Public Use
  Company Number: CH-009507513-1405CHE013793

PATIENT
  Age: 76 Year
  Sex: Female
  Weight: 37 kg

DRUGS (7)
  1. MIRTAZAPINE [Suspect]
     Indication: PALLIATIVE CARE
     Dosage: 30 MG, QD
     Route: 048
  2. MIRTAZAPINE [Suspect]
     Indication: DEPRESSION
  3. HALOPERIDOL [Suspect]
     Indication: PSYCHOTIC DISORDER
  4. TORSEMIDE [Suspect]
     Indication: DIURETIC THERAPY
  5. MORPHINE [Concomitant]
     Dosage: 60 MG PER DAY
     Route: 058
  6. PREDNISONE [Concomitant]
     Dosage: 40 MG PER DAY
     Route: 048
  7. OMEPRAZOLE [Concomitant]
     Dosage: 40 MG PER DAY
     Route: 048

REACTIONS (2)
  - Parotitis [Unknown]
  - Dry mouth [Unknown]
